FAERS Safety Report 8934346 (Version 3)
Quarter: 2013Q1

REPORT INFORMATION
  Report Type: Spontaneous
  Country: US (occurrence: US)
  Receive Date: 20121129
  Receipt Date: 20130116
  Transmission Date: 20140127
  Serious: No
  Sender: FDA-Public Use
  Company Number: US-PFIZER INC-2012297852

PATIENT
  Age: 32 Year
  Sex: Male
  Weight: 118 kg

DRUGS (3)
  1. GEODON [Suspect]
     Indication: BIPOLAR DISORDER
     Dosage: 90 MG, UNK
     Dates: start: 2012, end: 2012
  2. GEODON [Suspect]
     Dosage: 20 MG, 2X/DAY
     Dates: start: 2012, end: 201211
  3. GEODON [Suspect]
     Dosage: 80 MG, UNK

REACTIONS (3)
  - Drug intolerance [Unknown]
  - Headache [Unknown]
  - Sleep disorder [Unknown]
